FAERS Safety Report 6391597-3 (Version None)
Quarter: 2009Q4

REPORT INFORMATION
  Report Type: 
  Country: None (occurrence: None)
  Receive Date: 20091007
  Receipt Date: 20090930
  Transmission Date: 20100525
  Serious: Yes (Other)
  Sender: FDA-Public Use
  Company Number: IN-B.I. PHARMACEUTICALS,INC./RIDGEFIELD-2009-DE-06330GD

PATIENT
  Age: 3 Month
  Sex: Male
  Weight: 5 kg

DRUGS (3)
  1. CLONIDINE [Suspect]
     Indication: SPINAL ANAESTHESIA
     Dosage: 5 MCG
     Route: 037
  2. BUPIVACAINE [Suspect]
     Indication: SPINAL ANAESTHESIA
     Dosage: 2.5 MG
     Route: 037
  3. PROPOFOL [Concomitant]
     Indication: SEDATIVE THERAPY
     Dosage: 10 MG BOLUS AND INFUSION AT 25 MCG/(KG X MIN)

REACTIONS (5)
  - APNOEA [None]
  - HYPOTONIA [None]
  - LETHARGY [None]
  - RESPIRATORY DEPRESSION [None]
  - SEDATION [None]
